FAERS Safety Report 17593588 (Version 2)
Quarter: 2020Q2

REPORT INFORMATION
  Report Type: Spontaneous
  Country: PK (occurrence: PK)
  Receive Date: 20200327
  Receipt Date: 20200420
  Transmission Date: 20200713
  Serious: Yes (Hospitalization)
  Sender: FDA-Public Use
  Company Number: PK-NOVOPROD-720524

PATIENT
  Age: 45 Year
  Sex: Female

DRUGS (2)
  1. NOVOMIX 50 FLEXPEN [Suspect]
     Active Substance: INSULIN ASPART
     Dosage: 46 + 46UNIT
     Route: 058
     Dates: start: 20200227
  2. NOVOMIX 50 FLEXPEN [Suspect]
     Active Substance: INSULIN ASPART
     Indication: TYPE 2 DIABETES MELLITUS
     Dosage: 42 IU, QD
     Route: 058
     Dates: start: 20150101

REACTIONS (3)
  - Blood glucose increased [Not Recovered/Not Resolved]
  - Kidney infection [Recovered/Resolved]
  - Blood pressure increased [Not Recovered/Not Resolved]

NARRATIVE: CASE EVENT DATE: 20200220
